FAERS Safety Report 21570610 (Version 3)
Quarter: 2022Q4

REPORT INFORMATION
  Report Type: Spontaneous
  Country: ES (occurrence: ES)
  Receive Date: 20221109
  Receipt Date: 20221206
  Transmission Date: 20230113
  Serious: Yes (Other)
  Sender: FDA-Public Use
  Company Number: ES-BAYER-2022P020391

PATIENT
  Age: 52 Year
  Sex: Male

DRUGS (10)
  1. EYLEA [Suspect]
     Active Substance: AFLIBERCEPT
     Indication: Diabetic retinal oedema
     Dosage: OD RIGHT EYE; SOLUTION FOR INJECTION; 40 MG/ML
     Route: 031
     Dates: start: 20190506
  2. EYLEA [Suspect]
     Active Substance: AFLIBERCEPT
     Indication: Diabetic retinopathy
     Dosage: OD RIGHT EYE; SOLUTION FOR INJECTION; 40 MG/ML
     Route: 031
     Dates: start: 20190603
  3. EYLEA [Suspect]
     Active Substance: AFLIBERCEPT
     Dosage: OD LEFT EYE; SOLUTION FOR INJECTION; 40 MG/ML
     Route: 031
     Dates: start: 20190613
  4. EYLEA [Suspect]
     Active Substance: AFLIBERCEPT
     Dosage: OI LEFT EYE; SOLUTION FOR INJECTION; 40 MG/ML
     Route: 031
     Dates: start: 20190617
  5. EYLEA [Suspect]
     Active Substance: AFLIBERCEPT
     Dosage: OI RIGHT EYE; SOLUTION FOR INJECTION; 40 MG/ML
     Route: 031
     Dates: start: 20190708
  6. EYLEA [Suspect]
     Active Substance: AFLIBERCEPT
     Dosage: OI LEFT EYE; SOLUTION FOR INJECTION; 40 MG/ML
     Route: 031
     Dates: start: 20190715
  7. EYLEA [Suspect]
     Active Substance: AFLIBERCEPT
     Dosage: 3 LOADING DOSES, OU; SOLUTION FOR INJECTION; 40 MG/ML
     Route: 031
     Dates: start: 2019
  8. EYLEA [Suspect]
     Active Substance: AFLIBERCEPT
     Dosage: 3 DOSES, OU; SOLUTION FOR INJECTION; 40 MG/ML
     Route: 031
     Dates: start: 202002
  9. EYLEA [Suspect]
     Active Substance: AFLIBERCEPT
     Dosage: OU; SOLUTION FOR INJECTION; 40 MG/ML
     Route: 031
     Dates: start: 202110, end: 202110
  10. UNSPECIFIED INGREDIENT [Concomitant]
     Active Substance: UNSPECIFIED INGREDIENT
     Indication: Product used for unknown indication
     Dosage: UNK

REACTIONS (12)
  - Ocular hypertension [Unknown]
  - Diabetic retinal oedema [Unknown]
  - Visual acuity reduced [Recovering/Resolving]
  - Blindness unilateral [Recovering/Resolving]
  - Macular oedema [Unknown]
  - Inappropriate schedule of product administration [Unknown]
  - Conjunctivitis [Unknown]
  - Vitrectomy [Unknown]
  - Vitrectomy [Unknown]
  - Intraocular pressure increased [Unknown]
  - Intraocular pressure increased [Unknown]
  - Intraocular pressure increased [Unknown]

NARRATIVE: CASE EVENT DATE: 20191001
